FAERS Safety Report 8881106 (Version 1)
Quarter: 2012Q4

REPORT INFORMATION
  Report Type: 
  Country: JP (occurrence: JP)
  Receive Date: 20121031
  Receipt Date: 20121031
  Transmission Date: 20130627
  Serious: Yes (Death, Hospitalization, Other)
  Sender: FDA-Public Use
  Company Number: JP-ROCHE-1104652

PATIENT
  Sex: Male
  Weight: 58 kg

DRUGS (9)
  1. AVASTIN [Suspect]
     Indication: LUNG ADENOCARCINOMA RECURRENT
     Dosage: dose interval:every 5 to 6 weeks
     Route: 041
     Dates: start: 20120405, end: 20120619
  2. CISPLATIN [Concomitant]
     Indication: LUNG ADENOCARCINOMA RECURRENT
     Route: 041
     Dates: start: 20120405, end: 20120619
  3. ALIMTA [Concomitant]
     Indication: LUNG ADENOCARCINOMA RECURRENT
     Route: 041
     Dates: start: 20120405, end: 20120509
  4. ALIMTA [Concomitant]
     Route: 041
     Dates: start: 20120619, end: 20120619
  5. GRAN [Concomitant]
     Indication: WHITE BLOOD CELL COUNT DECREASED
     Route: 058
     Dates: start: 20120413, end: 20120414
  6. GRAN [Concomitant]
     Route: 058
     Dates: start: 20120419, end: 20120420
  7. GRAN [Concomitant]
     Route: 058
     Dates: start: 20120518, end: 20120519
  8. GRAN [Concomitant]
     Route: 058
     Dates: start: 20120626, end: 20120627
  9. GRAN [Concomitant]
     Route: 058
     Dates: start: 20120702, end: 20120704

REACTIONS (3)
  - Shock haemorrhagic [Fatal]
  - Metastases to peritoneum [Unknown]
  - White blood cell count decreased [Unknown]
